FAERS Safety Report 10837788 (Version 2)
Quarter: 2015Q1

REPORT INFORMATION
  Report Type: Spontaneous
  Country: CH (occurrence: None)
  Receive Date: 20150218
  Receipt Date: 20150311
  Transmission Date: 20150721
  Serious: Yes (Hospitalization, Other)
  Sender: FDA-Public Use
  Company Number: 20150077

PATIENT
  Age: 42 Year
  Sex: Male

DRUGS (5)
  1. OMEPRAZOLE. [Concomitant]
     Active Substance: OMEPRAZOLE
  2. SALINE [Suspect]
     Active Substance: SODIUM CHLORIDE
     Indication: PRODUCT USED FOR UNKNOWN INDICATION
     Dates: start: 201501
  3. VITAMINS(ERGOCALCIFEROL) [Suspect]
     Active Substance: ERGOCALCIFEROL
     Indication: PRODUCT USED FOR UNKNOWN INDICATION
     Dates: start: 201501
  4. VENOFER [Suspect]
     Active Substance: IRON SUCROSE
     Indication: ANAEMIA
     Dosage: 1 AMPOULE (1 IN 4 D) INTRAVENOUS
     Route: 042
     Dates: start: 20150115, end: 20150123
  5. METAMIZOLE [Concomitant]
     Active Substance: METAMIZOLE

REACTIONS (6)
  - Oedema [None]
  - Eye oedema [None]
  - Asthenia [None]
  - Somnolence [None]
  - Face oedema [None]
  - Oedema peripheral [None]

NARRATIVE: CASE EVENT DATE: 201501
